FAERS Safety Report 9208323 (Version 1)
Quarter: 2013Q2

REPORT INFORMATION
  Report Type: Spontaneous
  Country: US (occurrence: US)
  Receive Date: 20130403
  Receipt Date: 20130403
  Transmission Date: 20140414
  Serious: No
  Sender: FDA-Public Use
  Company Number: US-009507513-1303USA010478

PATIENT
  Sex: Female

DRUGS (2)
  1. PRINIVIL [Suspect]
  2. LYRICA [Suspect]
     Dosage: 150 MG, BID
     Route: 048

REACTIONS (5)
  - Drug hypersensitivity [Unknown]
  - Unemployment [Unknown]
  - General physical condition abnormal [Unknown]
  - Drug hypersensitivity [Unknown]
  - Drug hypersensitivity [Unknown]
